FAERS Safety Report 13056544 (Version 1)
Quarter: 2016Q4

REPORT INFORMATION
  Report Type: Spontaneous
  Country: US (occurrence: US)
  Receive Date: 20161222
  Receipt Date: 20161222
  Transmission Date: 20170207
  Serious: Yes (Other)
  Sender: FDA-Public Use
  Company Number: US-ALLERGAN-1681533US

PATIENT
  Sex: Female

DRUGS (1)
  1. LINZESS [Suspect]
     Active Substance: LINACLOTIDE
     Indication: CONSTIPATION
     Dosage: 145 ?G, UNKNOWN
     Route: 065
     Dates: start: 201611

REACTIONS (4)
  - Fatigue [Unknown]
  - Drug ineffective [Unknown]
  - Dyspnoea [Unknown]
  - Diarrhoea [Unknown]
